FAERS Safety Report 4283786-9 (Version None)
Quarter: 2004Q1

REPORT INFORMATION
  Report Type: 
  Country: None (occurrence: None)
  Receive Date: 20040115
  Receipt Date: 20030227
  Transmission Date: 20041129
  Serious: Yes (Death, Hospitalization)
  Sender: FDA-Public Use
  Company Number: NSADSS2002040379

PATIENT
  Age: 67 Year
  Sex: Male
  Weight: 79.8331 kg

DRUGS (4)
  1. DOXIL [Suspect]
     Indication: MESOTHELIOMA MALIGNANT
     Dosage: 85 MG, 1 IN 28, INTRAVENOUS DRIP
     Route: 041
     Dates: start: 20020610, end: 20020708
  2. LORTAB [Concomitant]
  3. PREVACID [Concomitant]
  4. ZOFRAN [Concomitant]

REACTIONS (2)
  - CONDITION AGGRAVATED [None]
  - INTESTINAL OBSTRUCTION [None]
